FAERS Safety Report 14591897 (Version 1)
Quarter: 2018Q1

REPORT INFORMATION
  Report Type: Spontaneous
  Country: BE (occurrence: BE)
  Receive Date: 20180302
  Receipt Date: 20180302
  Transmission Date: 20180509
  Serious: Yes (Hospitalization, Other)
  Sender: FDA-Public Use
  Company Number: BE-PFIZER INC-2018087652

PATIENT
  Age: 65 Year
  Sex: Male

DRUGS (3)
  1. CLEXANE [Suspect]
     Active Substance: ENOXAPARIN SODIUM
     Indication: THROMBOSIS
     Dosage: 100 MG, 2X/DAY
     Route: 042
     Dates: start: 20120411
  2. CLEXANE [Suspect]
     Active Substance: ENOXAPARIN SODIUM
     Dosage: 80 MG, 2X/DAY
     Route: 042
  3. CORDARONE [Suspect]
     Active Substance: AMIODARONE HYDROCHLORIDE
     Dosage: UNK
     Route: 065

REACTIONS (4)
  - Procedural haemorrhage [Recovered/Resolved]
  - Malaise [Unknown]
  - Injection site haemorrhage [Recovered/Resolved]
  - Abdominal wall haemorrhage [Recovered/Resolved]

NARRATIVE: CASE EVENT DATE: 20120416
